FAERS Safety Report 7865039-2 (Version None)
Quarter: 2011Q4

REPORT INFORMATION
  Report Type: 
  Country: None (occurrence: None)
  Receive Date: 20111028
  Receipt Date: 20101005
  Transmission Date: 20120403
  Serious: No
  Sender: FDA-Public Use
  Company Number: US-GLAXOSMITHKLINE-A0885016A

PATIENT
  Age: 89 Year
  Sex: Female

DRUGS (4)
  1. COUMADIN [Concomitant]
  2. LISINOPRIL [Concomitant]
  3. ADVAIR DISKUS 100/50 [Suspect]
     Indication: DYSPNOEA
     Dosage: 1BLS TWICE PER DAY
     Route: 055
     Dates: start: 20101002, end: 20101003
  4. TOPROL-XL [Concomitant]

REACTIONS (4)
  - DYSSTASIA [None]
  - DRUG INEFFECTIVE [None]
  - DRUG ADMINISTRATION ERROR [None]
  - BACK PAIN [None]
